FAERS Safety Report 5197921-1 (Version None)
Quarter: 2007Q1

REPORT INFORMATION
  Report Type: 
  Country: None (occurrence: None)
  Receive Date: 20070104
  Receipt Date: 20061228
  Transmission Date: 20070707
  Serious: Yes (Hospitalization)
  Sender: FDA-Public Use
  Company Number: PHHO2006JP19861

PATIENT
  Age: 83 Year
  Sex: Female
  Weight: 56 kg

DRUGS (8)
  1. MEVALOTIN [Concomitant]
  2. ADALAT [Concomitant]
  3. LIPITOR [Concomitant]
  4. LUPRAC [Concomitant]
  5. ARICEPT [Concomitant]
  6. ALLOPURINOL TAB [Concomitant]
  7. DIOVAN [Suspect]
     Indication: HYPERTENSION
     Dosage: 40 MG/DAILY
     Route: 048
     Dates: start: 20030514, end: 20030627
  8. DIOVAN [Suspect]
     Dosage: 80 MG/DAILY
     Route: 048
     Dates: start: 20030628

REACTIONS (1)
  - GASTROENTERITIS [None]
